FAERS Safety Report 9804369 (Version 2)
Quarter: 2014Q1

REPORT INFORMATION
  Report Type: Spontaneous
  Country: US (occurrence: None)
  Receive Date: 20140106
  Receipt Date: 20140131
  Transmission Date: 20141002
  Serious: Yes (Death)
  Sender: FDA-Public Use
  Company Number: UTC-042528

PATIENT
  Age: 56 Year
  Sex: Male
  Weight: 85.9 kg

DRUGS (16)
  1. TYVASO [Suspect]
     Indication: COR PULMONALE CHRONIC
     Dosage: 216 MCG, (54 MCG, 4 IN 1 D), INHALATION
     Route: 055
     Dates: start: 20110630
  2. LETAIRIS (AMBRISENTAN) (TABLETS) [Concomitant]
  3. LISINOPRIL [Concomitant]
  4. IRON SULFATE (FERROUS SULFATE) [Concomitant]
  5. VITAMIN C (ASCORBIC ACID) [Concomitant]
  6. AMBIEN (ZOLPIDEM TARTRATE) [Concomitant]
  7. OMEPRAZOLE [Concomitant]
  8. PREDNISONE [Concomitant]
  9. COLACE (DOCUSATE SODIUM) [Concomitant]
  10. MIRALAX (MACROGOL) [Concomitant]
  11. ALBUTEROL (SALBUTAMOL) (AEROSOL FOR INHALATION) [Concomitant]
  12. ADVAIR (SERETIDE/01420901) (POWDER) [Concomitant]
  13. ROXICODONE (OXYCODONE HYDROCHLORIDE) (TABLETS) [Concomitant]
  14. SOMA (CARISOPRODOL) [Concomitant]
  15. VITAMIN D (ERGOCALCIFEROL) [Concomitant]
  16. LASIX (FUROSEMIDE) [Concomitant]

REACTIONS (2)
  - Death [None]
  - Pulmonary hypertension [None]
